FAERS Safety Report 5597583-5 (Version None)
Quarter: 2008Q1

REPORT INFORMATION
  Report Type: 
  Country: None (occurrence: None)
  Receive Date: 20080121
  Receipt Date: 20080115
  Transmission Date: 20080703
  Serious: Yes (Death)
  Sender: FDA-Public Use
  Company Number: B0483280A

PATIENT
  Age: 62 Year
  Sex: Male

DRUGS (12)
  1. RANIDIL [Suspect]
     Dosage: 50MG PER DAY
     Route: 042
     Dates: start: 20070722, end: 20070723
  2. KETOPROFEN [Concomitant]
     Route: 042
     Dates: start: 20070722, end: 20070722
  3. PANTOPRAZOLE SODIUM [Concomitant]
     Route: 042
     Dates: start: 20070722, end: 20070722
  4. ASPIRIN [Concomitant]
     Route: 048
  5. BISOPROLOL FUMARATE [Concomitant]
     Dosage: 10MG PER DAY
     Route: 048
  6. GLIMEPIRIDE [Concomitant]
     Route: 048
  7. METFORMIN HYDROCHLORIDE [Concomitant]
     Route: 048
  8. OMEGA 3 POLYUNSATURATES [Concomitant]
  9. TELMISARTAN + HYDROCHLOROTHIAZIDE [Concomitant]
     Indication: HYPERTENSION
     Route: 048
  10. ALUMINUM HYDROXIDE GEL [Concomitant]
     Route: 048
  11. MAGNESIUM HYDROXIDE TAB [Concomitant]
     Route: 048
  12. ANTIHISTAMINE [Concomitant]

REACTIONS (17)
  - ABDOMINAL PAIN UPPER [None]
  - ACUTE PULMONARY OEDEMA [None]
  - BACK PAIN [None]
  - CARDIOGENIC SHOCK [None]
  - GASTROINTESTINAL NECROSIS [None]
  - HEPATIC NECROSIS [None]
  - HYPERHIDROSIS [None]
  - INFLAMMATION [None]
  - LIVEDO RETICULARIS [None]
  - LYMPHOCYTIC INFILTRATION [None]
  - MELAENA [None]
  - MUSCLE SPASMS [None]
  - MUSCULAR WEAKNESS [None]
  - PALLOR [None]
  - PARAESTHESIA [None]
  - PERITONITIS [None]
  - THROMBOSIS [None]
